FAERS Safety Report 8780516 (Version 1)
Quarter: 2012Q4

REPORT INFORMATION
  Report Type: Spontaneous
  Country: CA (occurrence: None)
  Receive Date: 20120829
  Receipt Date: 20120829
  Transmission Date: 20130627
  Serious: Yes (Hospitalization)
  Sender: FDA-Public Use
  Company Number: 2012CA0272

PATIENT

DRUGS (1)
  1. NITISINONE [Suspect]
     Indication: TYROSINEMIA TYPE I

REACTIONS (2)
  - Hepatic cirrhosis [None]
  - Liver transplant [None]
